FAERS Safety Report 23517593 (Version 1)
Quarter: 2024Q1

REPORT INFORMATION
  Report Type: Spontaneous
  Country: US (occurrence: US)
  Receive Date: 20240213
  Receipt Date: 20240213
  Transmission Date: 20240409
  Serious: No
  Sender: FDA-Public Use
  Company Number: US-002147023-NVSC2024US029842

PATIENT
  Sex: Female
  Weight: 65.77 kg

DRUGS (1)
  1. LEQVIO [Suspect]
     Active Substance: INCLISIRAN SODIUM
     Indication: Hyperlipidaemia
     Dosage: 284 MG (ONE SINGLE DOSE)
     Route: 003
     Dates: start: 20240207

REACTIONS (4)
  - Nasal congestion [Unknown]
  - Lymphadenopathy [Unknown]
  - Headache [Unknown]
  - Diarrhoea [Unknown]
